FAERS Safety Report 5799935-7 (Version None)
Quarter: 2008Q3

REPORT INFORMATION
  Report Type: 
  Country: None (occurrence: None)
  Receive Date: 20080702
  Receipt Date: 20080702
  Transmission Date: 20090109
  Serious: Yes (Other)
  Sender: FDA-Public Use
  Company Number: None

PATIENT
  Age: 87 Year
  Sex: Male

DRUGS (2)
  1. DIGITEK 0.125MG BERTEK (ACTAVIS) [Suspect]
     Indication: ATRIAL FIBRILLATION
     Dosage: 0.125MG ORAL TABS }1 YEAR DURATION
     Route: 048
  2. DIGITEK 0.125MG BERTEK (ACTAVIS) [Suspect]
     Indication: CARDIAC FAILURE
     Dosage: 0.125MG ORAL TABS }1 YEAR DURATION
     Route: 048

REACTIONS (7)
  - DIARRHOEA [None]
  - DIZZINESS [None]
  - HEADACHE [None]
  - PHARMACEUTICAL PRODUCT COMPLAINT [None]
  - TACHYCARDIA [None]
  - THERAPEUTIC AGENT TOXICITY [None]
  - VISUAL IMPAIRMENT [None]
